FAERS Safety Report 15592629 (Version 1)
Quarter: 2018Q4

REPORT INFORMATION
  Report Type: Spontaneous
  Country: US (occurrence: US)
  Receive Date: 20181102
  Receipt Date: 20181102
  Transmission Date: 20190205
  Serious: Yes (Hospitalization)
  Sender: FDA-Public Use
  Company Number: None

PATIENT
  Age: 78 Year
  Sex: Female

DRUGS (1)
  1. SOLIRIS [Suspect]
     Active Substance: ECULIZUMAB
     Indication: ANAEMIA
     Route: 042
     Dates: start: 20180207

REACTIONS (4)
  - Condition aggravated [None]
  - Blood creatinine increased [None]
  - Device dependence [None]
  - Anuria [None]

NARRATIVE: CASE EVENT DATE: 20180801
